FAERS Safety Report 26109387 (Version 1)
Quarter: 2025Q4

REPORT INFORMATION
  Report Type: Spontaneous
  Country: EU (occurrence: EU)
  Receive Date: 20251201
  Receipt Date: 20251201
  Transmission Date: 20260118
  Serious: Yes (Other)
  Sender: MYLAN
  Company Number: EU-009507513-2348495

PATIENT
  Age: 69 Year
  Sex: Male

DRUGS (4)
  1. GEMCITABINE [Suspect]
     Active Substance: GEMCITABINE
     Indication: Squamous cell carcinoma of lung
     Dosage: UNK
  2. CISPLATIN [Suspect]
     Active Substance: CISPLATIN
     Indication: Squamous cell carcinoma of lung
     Dosage: UNK
  3. PEMBROLIZUMAB [Suspect]
     Active Substance: PEMBROLIZUMAB
     Indication: Squamous cell carcinoma of lung
     Dosage: UNK
  4. PEMBROLIZUMAB [Suspect]
     Active Substance: PEMBROLIZUMAB
     Dosage: UNK, 12 CYCLES ADJUVANT TREATMENT WITH PEMBROLIZUMAB

REACTIONS (2)
  - Malignant neoplasm progression [Unknown]
  - Surgery [Unknown]

NARRATIVE: CASE EVENT DATE: 20220601
